FAERS Safety Report 4620907-X (Version None)
Quarter: 2005Q1

REPORT INFORMATION
  Report Type: 
  Country: None (occurrence: None)
  Receive Date: 20050325
  Receipt Date: 20050317
  Transmission Date: 20050727
  Serious: Yes (Hospitalization)
  Sender: FDA-Public Use
  Company Number: URSO 2005-012

PATIENT
  Age: 64 Year
  Sex: Male

DRUGS (2)
  1. URSODIOL [Suspect]
     Indication: HEPATIC FUNCTION ABNORMAL
     Route: 048
     Dates: start: 20041022, end: 20041104
  2. THIOLA (TIOPRONIN) [Suspect]
     Route: 048
     Dates: start: 20041022, end: 20041104

REACTIONS (4)
  - INTERSTITIAL LUNG DISEASE [None]
  - LIVER DISORDER [None]
  - LYMPHOCYTE STIMULATION TEST POSITIVE [None]
  - POLYMYOSITIS [None]
